FAERS Safety Report 21075928 (Version 1)
Quarter: 2022Q3

REPORT INFORMATION
  Report Type: Spontaneous
  Country: FR (occurrence: FR)
  Receive Date: 20220713
  Receipt Date: 20220713
  Transmission Date: 20221027
  Serious: Yes (Hospitalization)
  Sender: FDA-Public Use
  Company Number: None

PATIENT
  Age: 68 Year
  Sex: Male
  Weight: 132 kg

DRUGS (9)
  1. DAPTOMYCIN [Suspect]
     Active Substance: DAPTOMYCIN
     Indication: Osteitis
     Dosage: 1 GRAM, QD, 1000MG/24H ADAPTED ON 22-OCT-2021 TO 600MG/24H
     Route: 042
     Dates: start: 20210825, end: 20211104
  2. MEROPENEM ANHYDROUS [Suspect]
     Active Substance: MEROPENEM ANHYDROUS
     Indication: Osteitis
     Dosage: 2 GRAM, Q8H
     Route: 042
     Dates: start: 20210916, end: 20211104
  3. LEVOFLOXACIN [Suspect]
     Active Substance: LEVOFLOXACIN
     Indication: Osteitis
     Dosage: 500 MILLIGRAM, Q12H
     Route: 048
     Dates: start: 20210923, end: 20211104
  4. AMLODIPINE [Concomitant]
     Active Substance: AMLODIPINE BESYLATE
     Dosage: UNK
  5. RILMENIDINE [Concomitant]
     Active Substance: RILMENIDINE
     Dosage: UNK
  6. IRBESARTAN [Concomitant]
     Active Substance: IRBESARTAN
     Dosage: UNK
  7. ACETAMINOPHEN [Concomitant]
     Active Substance: ACETAMINOPHEN
     Dosage: UNK
  8. LOVENOX [Concomitant]
     Active Substance: ENOXAPARIN SODIUM
     Dosage: UNK, 6000 ANTI-XA IU/0.6 ML, SOLUTION FOR INJECTION (SC) IN PRE-FILLED SYRINGE
  9. TRANSIPEG [MACROGOL 3350] [Concomitant]
     Dosage: UNK

REACTIONS (1)
  - Agranulocytosis [Recovering/Resolving]

NARRATIVE: CASE EVENT DATE: 20211104
